FAERS Safety Report 17571092 (Version 1)
Quarter: 2020Q1

REPORT INFORMATION
  Report Type: Spontaneous
  Country: ES (occurrence: ES)
  Receive Date: 20200323
  Receipt Date: 20200323
  Transmission Date: 20200409
  Serious: Yes (Other)
  Sender: FDA-Public Use
  Company Number: NVSC2020ES076957

PATIENT
  Age: 21 Year
  Sex: Male

DRUGS (4)
  1. OLANZAPINA SANDOZ 10 MG COMPRIMIDOS BUCODISPERSABLES EFG [Suspect]
     Active Substance: OLANZAPINE
     Indication: PSYCHOTIC DISORDER
     Dosage: 10 MG
     Route: 048
     Dates: start: 20191211
  2. CLEXANE [Concomitant]
     Active Substance: ENOXAPARIN SODIUM
     Indication: PRODUCT USED FOR UNKNOWN INDICATION
     Dosage: DURANTE INGRESO HOSPITALARIO DEL 11/12/2019 AL 12/12/2019 ^DOSIS 1 INYECTABLE SC. V?A SC. FRECUENCIA
     Route: 058
     Dates: start: 20191211, end: 20191211
  3. PALIPERIDONE. [Suspect]
     Active Substance: PALIPERIDONE
     Indication: PSYCHOTIC DISORDER
     Dosage: DURANTE INGRESO HOSPITALARIO DEL 11/12/2019 AL 12/12/2019 ^DOSIS 6 MG. V?A ORAL. FRECUENCIA CON EL D
     Route: 048
     Dates: start: 20191212, end: 20191212
  4. CLOPIXOL ACUPHASE [Suspect]
     Active Substance: ZUCLOPENTHIXOL ACETATE
     Indication: PSYCHOTIC DISORDER
     Dosage: 50 MG, QD
     Route: 030
     Dates: start: 20191211, end: 20191211

REACTIONS (1)
  - Extrapyramidal disorder [Unknown]

NARRATIVE: CASE EVENT DATE: 20191213
